FAERS Safety Report 8546567-3 (Version None)
Quarter: 2012Q3

REPORT INFORMATION
  Report Type: 
  Country: None (occurrence: None)
  Receive Date: 20120727
  Receipt Date: 20111228
  Transmission Date: 20120928
  Serious: No
  Sender: FDA-Public Use
  Company Number: US-ASTRAZENECA-2011SE78562

PATIENT
  Age: 53 Year
  Sex: Female
  Weight: 81.6 kg

DRUGS (16)
  1. MELATONIN [Concomitant]
     Indication: SLEEP DISORDER
  2. SEROQUEL [Suspect]
     Indication: BIPOLAR DISORDER
     Dosage: 300 MG HALF SPLITTED TABLETS AT NIGHT
     Route: 048
  3. LEVOTHYROXINE SODIUM [Concomitant]
  4. SINGULAIR [Concomitant]
     Indication: HYPERSENSITIVITY
  5. XYPREXA [Concomitant]
  6. CLONEPINE [Concomitant]
  7. LIPITOR [Concomitant]
  8. CHLORPHENIRAMINE TAB [Concomitant]
     Indication: HYPERSENSITIVITY
     Dosage: AS REQUIRED
  9. SEROQUEL [Suspect]
     Indication: SLEEP DISORDER
     Dosage: 300 MG HALF SPLITTED TABLETS AT NIGHT
     Route: 048
  10. ATENOLOL [Concomitant]
  11. BENADRYL [Concomitant]
     Indication: ANTIALLERGIC THERAPY
     Dosage: AS REQUIRED
  12. NARDIL [Concomitant]
  13. IBUPROFEN [Concomitant]
     Indication: PAIN
  14. ABILIFY [Concomitant]
  15. COMBIVENT [Concomitant]
     Indication: ASTHMA
     Dosage: AS REQUIRED
  16. IBUPROFEN [Concomitant]
     Indication: FEELING HOT

REACTIONS (10)
  - PYREXIA [None]
  - SOMNOLENCE [None]
  - WRONG TECHNIQUE IN DRUG USAGE PROCESS [None]
  - OROPHARYNGEAL PAIN [None]
  - DRUG ADMINISTRATION ERROR [None]
  - WEIGHT INCREASED [None]
  - PAIN [None]
  - COUGH [None]
  - INCREASED APPETITE [None]
  - INSOMNIA [None]
